FAERS Safety Report 19827931 (Version 1)
Quarter: 2021Q3

REPORT INFORMATION
  Report Type: Spontaneous
  Country: NL (occurrence: NL)
  Receive Date: 20210914
  Receipt Date: 20210914
  Transmission Date: 20211014
  Serious: Yes (Other)
  Sender: FDA-Public Use
  Company Number: NL-ASTRAZENECA-2021A713627

PATIENT
  Sex: Female
  Weight: 78 kg

DRUGS (18)
  1. ASCORBINEZUUR TABLET 500MG / BRAND NAME NOT SPECIFIED [Concomitant]
     Dosage: 1 X PER DAG 1 STUK
  2. CRESTOR [Suspect]
     Active Substance: ROSUVASTATIN CALCIUM
     Indication: HYPERCHOLESTEROLAEMIA
     Dosage: 1DD 1 ST
     Route: 048
     Dates: start: 202107, end: 20210831
  3. CYANOCOBALAMINE TABLET 1000UG / BRAND NAME NOT SPECIFIED [Concomitant]
     Active Substance: CYANOCOBALAMIN
     Dosage: 1 X PER DAG 1 STUK1000UG/INHAL DAILY
  4. INSULINE ASPART INJVLST 100E/ML / BRAND NAME NOT SPECIFIED [Concomitant]
  5. METOPROLOL TABLET MGA  25MG (SUCCINAAT) / BRAND NAME NOT SPECIFIED [Concomitant]
     Active Substance: METOPROLOL SUCCINATE
  6. LEVOTHYROXINE TABLET 100UG (NATRIUM) / LEVOTHYROXINENATRIUM TEVA TA... [Concomitant]
  7. ENALAPRIL TABLET  5MG / BRAND NAME NOT SPECIFIED [Concomitant]
     Active Substance: ENALAPRIL
     Dosage: 1 X PER DAG 1 STUK
  8. CALCIUMCARB/COLECALC KAUWTB 1,25G/800IE (500MG CA) / BRAND NAME NOT... [Concomitant]
     Dosage: 1 X PER DAG 1 STUK
  9. INSULINE ASPART/PROTAMINE INJS 70/30E/ML / BRAND NAME NOT SPECIFIED [Concomitant]
  10. ACENOCOUMAROL TABLET 1MG / BRAND NAME NOT SPECIFIED [Concomitant]
     Active Substance: ACENOCOUMAROL
     Dosage: 1 X PER DAG OP GELEIDE INR
  11. METFORMINE TABLET   500MG / BRAND NAME NOT SPECIFIED [Concomitant]
     Active Substance: METFORMIN HYDROCHLORIDE
  12. PANTOPRAZOL TABLET MSR 40MG / BRAND NAME NOT SPECIFIED [Concomitant]
     Active Substance: PANTOPRAZOLE
  13. FOLIUMZUUR TABLET 5MG / BRAND NAME NOT SPECIFIED [Concomitant]
     Dosage: 2 X PER WEEK
  14. PREDNISOLON TABLET  5MG / BRAND NAME NOT SPECIFIED [Concomitant]
     Active Substance: PREDNISOLONE
  15. RISEDRONINEZUUR TABLET FO 35MG / BRAND NAME NOT SPECIFIED [Concomitant]
  16. METHOTREXAAT INJVLST  50MG/ML / BRAND NAME NOT SPECIFIED [Concomitant]
     Active Substance: METHOTREXATE
  17. PARACETAMOL/CODEINE TABLET 500/10MG / BRAND NAME NOT SPECIFIED [Concomitant]
  18. MACROGOL/ZOUTEN PDR V DRANK (MOVIC/MOLAX/LAXT/GEN) / BRAND NAME NOT... [Concomitant]

REACTIONS (1)
  - Alopecia [Not Recovered/Not Resolved]
